FAERS Safety Report 22131269 (Version 1)
Quarter: 2023Q1

REPORT INFORMATION
  Report Type: Spontaneous
  Country: CN (occurrence: CN)
  Receive Date: 20230323
  Receipt Date: 20230323
  Transmission Date: 20230418
  Serious: Yes (Hospitalization, Other)
  Sender: FDA-Public Use
  Company Number: CN-009507513-2303CHN006924

PATIENT
  Age: 52 Year
  Sex: Male

DRUGS (2)
  1. INVANZ [Suspect]
     Active Substance: ERTAPENEM SODIUM
     Indication: Haematological infection
     Dosage: 1 G, QD
     Route: 041
     Dates: start: 20230313, end: 20230316
  2. CEFTRIAXONE [Concomitant]
     Active Substance: CEFTRIAXONE
     Indication: Anti-infective therapy
     Dosage: 2 G, QD
     Dates: start: 202303

REACTIONS (2)
  - Epilepsy [Recovering/Resolving]
  - Dysphoria [Unknown]

NARRATIVE: CASE EVENT DATE: 20230316
